FAERS Safety Report 13460928 (Version 2)
Quarter: 2017Q2

REPORT INFORMATION
  Report Type: Spontaneous
  Country: JP (occurrence: JP)
  Receive Date: 20170420
  Receipt Date: 20170427
  Transmission Date: 20170830
  Serious: Yes (Other)
  Sender: FDA-Public Use
  Company Number: JP-ROCHE-1693588

PATIENT
  Age: 45 Year
  Sex: Female

DRUGS (7)
  1. DAPTOMYCIN. [Suspect]
     Active Substance: DAPTOMYCIN
     Indication: STAPHYLOCOCCAL INFECTION
     Route: 065
  2. LINEZOLID. [Suspect]
     Active Substance: LINEZOLID
     Indication: STAPHYLOCOCCAL INFECTION
     Route: 065
  3. METHOTREXATE. [Suspect]
     Active Substance: METHOTREXATE
     Indication: PRODUCT USED FOR UNKNOWN INDICATION
     Dosage: THE FRATIONATION DOSE FREQUENCY IS UNCERTAIN
     Route: 065
  4. PREDONINE [Concomitant]
     Active Substance: PREDNISOLONE
  5. SULFAMETHOXAZOLE/TRIMETHOPRIM [Concomitant]
     Active Substance: SULFAMETHOXAZOLE\TRIMETHOPRIM
     Indication: STAPHYLOCOCCAL INFECTION
     Route: 048
  6. ACTEMRA [Suspect]
     Active Substance: TOCILIZUMAB
     Indication: RHEUMATOID ARTHRITIS
     Dosage: THE FRACTION OF DOSE FREQUENCY IS UNCERTAIN. DOSE INTERVAL UNCERTAINTY?DATE OF MOST RECENT DOSE: /MA
     Route: 058
     Dates: start: 201211
  7. SULFAMETHOXAZOLE/TRIMETHOPRIM [Concomitant]
     Active Substance: SULFAMETHOXAZOLE\TRIMETHOPRIM
     Indication: PROPHYLAXIS
     Route: 048

REACTIONS (5)
  - Staphylococcal infection [Unknown]
  - Off label use [Unknown]
  - Pancytopenia [Unknown]
  - Blood creatine phosphokinase increased [Unknown]
  - Muscle abscess [Recovered/Resolved]

NARRATIVE: CASE EVENT DATE: 201505
